FAERS Safety Report 14460812 (Version 1)
Quarter: 2018Q1

REPORT INFORMATION
  Report Type: Other
  Country: US (occurrence: US)
  Receive Date: 20180130
  Receipt Date: 20180130
  Transmission Date: 20180509
  Serious: No
  Sender: FDA-Public Use
  Company Number: US-ACORDA-ACO_141864_2017

PATIENT
  Sex: Female

DRUGS (1)
  1. AMPYRA [Suspect]
     Active Substance: DALFAMPRIDINE
     Indication: PRODUCT USED FOR UNKNOWN INDICATION
     Dosage: 10 MG, ER TABS
     Route: 065
     Dates: start: 20160701

REACTIONS (4)
  - Product physical issue [Unknown]
  - Vomiting [Unknown]
  - Dysphagia [Unknown]
  - Diarrhoea [Unknown]
